FAERS Safety Report 5010488-3 (Version None)
Quarter: 2006Q2

REPORT INFORMATION
  Report Type: 
  Country: None (occurrence: None)
  Receive Date: 20060525
  Receipt Date: 20050606
  Transmission Date: 20061013
  Serious: No
  Sender: FDA-Public Use
  Company Number: US-GLAXOSMITHKLINE-A0561373A

PATIENT
  Age: 16 Month
  Sex: Male

DRUGS (2)
  1. BACTROBAN [Suspect]
     Indication: ECZEMA
     Route: 061
     Dates: start: 20050501
  2. NO CONCURRENT MEDICATION [Concomitant]

REACTIONS (1)
  - ERYTHEMA [None]
